FAERS Safety Report 5932497-X (Version None)
Quarter: 2008Q4

REPORT INFORMATION
  Report Type: 
  Country: None (occurrence: None)
  Receive Date: 20081028
  Receipt Date: 20081021
  Transmission Date: 20090506
  Serious: Yes (Other)
  Sender: FDA-Public Use
  Company Number: JP-GENENTECH-270160

PATIENT
  Age: 66 Year
  Sex: Male

DRUGS (16)
  1. RITUXAN [Suspect]
     Indication: DIFFUSE LARGE B-CELL LYMPHOMA
     Route: 065
  2. DOXORUBICIN HCL [Concomitant]
     Indication: B-CELL LYMPHOMA
  3. CYCLOPHOSPHAMIDE [Concomitant]
     Indication: B-CELL LYMPHOMA
  4. VINCRISTINE [Concomitant]
     Indication: B-CELL LYMPHOMA
  5. PREDNISOLONE [Concomitant]
     Indication: B-CELL LYMPHOMA
  6. ETOPOSIDE [Concomitant]
     Indication: B-CELL LYMPHOMA
  7. METHYLPREDNISOLONE 16MG TAB [Concomitant]
     Indication: B-CELL LYMPHOMA
  8. CYTARABINE [Concomitant]
     Indication: B-CELL LYMPHOMA
  9. CISPLATIN [Concomitant]
     Indication: B-CELL LYMPHOMA
  10. RANIMUSTINE [Concomitant]
     Indication: STEM CELL TRANSPLANT
  11. CARBOPLATIN [Concomitant]
     Indication: STEM CELL TRANSPLANT
  12. ETOPOSIDE [Concomitant]
     Indication: STEM CELL TRANSPLANT
  13. CYCLOPHOSPHAMIDE [Concomitant]
     Indication: STEM CELL TRANSPLANT
  14. FLUDARABINE [Concomitant]
     Indication: B-CELL LYMPHOMA
  15. MITOXANTRONE [Concomitant]
     Indication: B-CELL LYMPHOMA
  16. ETOPOSIDE [Concomitant]

REACTIONS (1)
  - LEUKAEMIA [None]
